FAERS Safety Report 12911316 (Version 1)
Quarter: 2016Q4

REPORT INFORMATION
  Report Type: Spontaneous
  Country: US (occurrence: US)
  Receive Date: 20161104
  Receipt Date: 20161104
  Transmission Date: 20170207
  Serious: No
  Sender: FDA-Public Use
  Company Number: US-BAYER-2016-211314

PATIENT
  Age: 77 Year
  Sex: Male
  Weight: 68.27 kg

DRUGS (2)
  1. XELODA [Concomitant]
     Active Substance: CAPECITABINE
  2. MIRALAX [Suspect]
     Active Substance: POLYETHYLENE GLYCOL 3350
     Indication: IMPAIRED GASTRIC EMPTYING
     Dosage: 3 DOSES, QD
     Route: 048
     Dates: start: 201610, end: 20161030

REACTIONS (2)
  - Bowel movement irregularity [Unknown]
  - Off label use [Unknown]
